FAERS Safety Report 25348303 (Version 3)
Quarter: 2025Q3

REPORT INFORMATION
  Report Type: Spontaneous
  Country: JP (occurrence: JP)
  Receive Date: 20250522
  Receipt Date: 20250809
  Transmission Date: 20251021
  Serious: Yes (Hospitalization, Other)
  Sender: ALEXION PHARMACEUTICALS
  Company Number: JP-ASTRAZENECA-250022678_011620_P_1

PATIENT
  Age: 67 Year
  Sex: Female
  Weight: 49 kg

DRUGS (10)
  1. LYNPARZA [Suspect]
     Active Substance: OLAPARIB
     Indication: Malignant peritoneal neoplasm
  2. LYNPARZA [Suspect]
     Active Substance: OLAPARIB
  3. LYNPARZA [Suspect]
     Active Substance: OLAPARIB
     Dosage: 300 MILLIGRAM, BID
     Dates: start: 20230615, end: 20230619
  4. LYNPARZA [Suspect]
     Active Substance: OLAPARIB
     Dates: start: 20230802, end: 20230906
  5. LYNPARZA [Suspect]
     Active Substance: OLAPARIB
     Dates: start: 20230907, end: 20231214
  6. LANSOPRAZOLE [Concomitant]
     Active Substance: LANSOPRAZOLE
     Indication: Gastrointestinal disorder prophylaxis
     Dosage: 15 MILLIGRAM, QD
  7. OLMESARTAN MEDOXOMIL [Concomitant]
     Active Substance: OLMESARTAN MEDOXOMIL
     Indication: Hypertension
     Dosage: 20 MILLIGRAM, QD
     Dates: start: 20230221
  8. NIFEDIPINE [Concomitant]
     Active Substance: NIFEDIPINE
     Indication: Hypertension
     Dosage: 40 MILLIGRAM, QD
     Dates: start: 20221101
  9. HERBALS [Concomitant]
     Active Substance: HERBALS
     Indication: Muscular weakness
     Dosage: 2.5 GRAM, TID
     Dates: start: 20230621
  10. METOCLOPRAMIDE [Concomitant]
     Active Substance: METOCLOPRAMIDE
     Indication: Nausea
     Dates: start: 20230201, end: 20231005

REACTIONS (5)
  - Neutropenia [Recovered/Resolved]
  - Nausea [Recovered/Resolved]
  - Dehydration [Unknown]
  - Constipation [Unknown]
  - Muscular weakness [Unknown]

NARRATIVE: CASE EVENT DATE: 20230619
